FAERS Safety Report 25465107 (Version 1)
Quarter: 2025Q2

REPORT INFORMATION
  Report Type: Report from Study
  Country: ZA (occurrence: ZA)
  Receive Date: 20250622
  Receipt Date: 20250622
  Transmission Date: 20250716
  Serious: Yes (Death)
  Sender: ALEXION PHARMACEUTICALS
  Company Number: ZA-AstraZeneca-CH-00895030A

PATIENT
  Age: 62 Year

DRUGS (7)
  1. BUDESONIDE\FORMOTEROL [Suspect]
     Active Substance: BUDESONIDE\FORMOTEROL
     Indication: Asthma
  2. CETIRIZINE HYDROCHLORIDE [Concomitant]
     Active Substance: CETIRIZINE HYDROCHLORIDE
     Indication: Hypersensitivity
  3. CLARITHROMYCIN [Concomitant]
     Active Substance: CLARITHROMYCIN
  4. PREDNISONE [Concomitant]
     Active Substance: PREDNISONE
  5. Symadin [Concomitant]
     Indication: Parkinson^s disease
  6. FLUTICASONE FUROATE [Concomitant]
     Active Substance: FLUTICASONE FUROATE
     Indication: Hypersensitivity
  7. Venteze [Concomitant]
     Indication: Bronchospasm

REACTIONS (1)
  - Myocardial infarction [Fatal]
